FAERS Safety Report 20461279 (Version 1)
Quarter: 2022Q1

REPORT INFORMATION
  Report Type: Spontaneous
  Country: US (occurrence: None)
  Receive Date: 20220210
  Receipt Date: 20220210
  Transmission Date: 20220423
  Serious: No
  Sender: FDA-Public Use
  Company Number: None

PATIENT
  Age: 46 Year
  Sex: Female
  Weight: 47.7 kg

DRUGS (1)
  1. COMBIPATCH [Suspect]
     Active Substance: ESTRADIOL\NORETHINDRONE ACETATE
     Indication: Menopause
     Dosage: OTHER QUANTITY : 8 PATCH(ES);?FREQUENCY : 2 TIMES PER WEEK?
     Route: 062
     Dates: start: 20210501, end: 20220210

REACTIONS (3)
  - Skin burning sensation [None]
  - Application site urticaria [None]
  - Pruritus [None]

NARRATIVE: CASE EVENT DATE: 20220201
